FAERS Safety Report 20495460 (Version 1)
Quarter: 2022Q1

REPORT INFORMATION
  Report Type: Other
  Country: None (occurrence: US)
  Receive Date: 20220221
  Receipt Date: 20220221
  Transmission Date: 20220423
  Serious: Yes (Hospitalization, Other)
  Sender: FDA-Public Use
  Company Number: US-Innogenix, LLC-2126062

PATIENT
  Age: 55 Year
  Sex: Female

DRUGS (10)
  1. BACLOFEN [Suspect]
     Active Substance: BACLOFEN
     Indication: Product used for unknown indication
     Route: 065
  2. MEROPENEM [Concomitant]
     Active Substance: MEROPENEM
     Route: 065
  3. ERTAPENEM. [Concomitant]
     Active Substance: ERTAPENEM SODIUM
     Route: 065
  4. ALPRAZOLAM [Suspect]
     Active Substance: ALPRAZOLAM
     Route: 065
  5. CLONAZEPAM [Suspect]
     Active Substance: CLONAZEPAM
     Route: 065
  6. GABAPENTIN [Concomitant]
     Active Substance: GABAPENTIN
     Route: 065
  7. BUPROPION [Concomitant]
     Active Substance: BUPROPION
     Route: 065
  8. MEMANTINE [Concomitant]
     Active Substance: MEMANTINE
     Route: 065
  9. ESCITALOPRAM [Concomitant]
     Active Substance: ESCITALOPRAM OXALATE
     Route: 065
  10. MODAFINIL [Concomitant]
     Active Substance: MODAFINIL
     Route: 065

REACTIONS (4)
  - Encephalopathy [Recovered/Resolved]
  - Muscle spasticity [Recovered/Resolved]
  - Withdrawal syndrome [Recovered/Resolved]
  - Condition aggravated [Recovered/Resolved]
